FAERS Safety Report 25883453 (Version 1)
Quarter: 2025Q4

REPORT INFORMATION
  Report Type: Report from Study
  Country: US (occurrence: US)
  Receive Date: 20251006
  Receipt Date: 20251006
  Transmission Date: 20260118
  Serious: Yes (Other)
  Sender: ALEXION PHARMACEUTICALS
  Company Number: US-AstraZeneca-CH-00961471A

PATIENT
  Age: 61 Year
  Sex: Female
  Weight: 47.2 kg

DRUGS (22)
  1. CALQUENCE [Suspect]
     Active Substance: ACALABRUTINIB
     Indication: Chronic lymphocytic leukaemia
     Dates: start: 20250828
  2. ACYCLOVIR [Concomitant]
     Active Substance: ACYCLOVIR
  3. BUDESONIDE [Concomitant]
     Active Substance: BUDESONIDE
  4. GAMMAGARD [Concomitant]
     Active Substance: HUMAN IMMUNOGLOBULIN G
     Route: 065
  5. POTASSIUM CHLORIDE [Concomitant]
     Active Substance: POTASSIUM CHLORIDE
     Route: 065
  6. RAMELTEON [Concomitant]
     Active Substance: RAMELTEON
  7. ALBUTEROL SULFATE [Concomitant]
     Active Substance: ALBUTEROL SULFATE
  8. ALLOPURINOL [Concomitant]
     Active Substance: ALLOPURINOL
     Route: 065
  9. BUSPIRONE [Concomitant]
     Active Substance: BUSPIRONE HYDROCHLORIDE
     Route: 065
  10. CLONAZEPAM [Concomitant]
     Active Substance: CLONAZEPAM
  11. CYCLOBENZAPRINE HYDROCHLORIDE [Concomitant]
     Active Substance: CYCLOBENZAPRINE HYDROCHLORIDE
     Route: 065
  12. DESVENLAFAXINE [Concomitant]
     Active Substance: DESVENLAFAXINE
     Route: 065
  13. DICYCLOMINE [Concomitant]
     Active Substance: DICYCLOMINE HYDROCHLORIDE
     Route: 065
  14. DULOXETINE [Concomitant]
     Active Substance: DULOXETINE
  15. HYDROXYZINE [Concomitant]
     Active Substance: HYDROXYZINE HYDROCHLORIDE
     Route: 065
  16. LEVOCETIRIZINE [Concomitant]
     Active Substance: LEVOCETIRIZINE
     Route: 065
  17. LOPERAMIDE HYDROCHLORIDE [Concomitant]
     Active Substance: LOPERAMIDE HYDROCHLORIDE
     Route: 065
  18. METOCLOPRAMIDE [Concomitant]
     Active Substance: METOCLOPRAMIDE
     Route: 065
  19. PROMETHAZINE HYDROCHLORIDE [Concomitant]
     Active Substance: PROMETHAZINE HYDROCHLORIDE
     Route: 065
  20. ROPINIROLE [Concomitant]
     Active Substance: ROPINIROLE
  21. SUMATRIPTAN [Concomitant]
     Active Substance: SUMATRIPTAN
     Route: 065
  22. TRAZODONE [Concomitant]
     Active Substance: TRAZODONE HYDROCHLORIDE
     Route: 065

REACTIONS (3)
  - Contusion [Not Recovered/Not Resolved]
  - Thrombosis [Not Recovered/Not Resolved]
  - Headache [Recovered/Resolved]
